FAERS Safety Report 9799598 (Version 2)
Quarter: 2015Q3

REPORT INFORMATION
  Report Type: Spontaneous
  Country: US (occurrence: US)
  Receive Date: 20140106
  Receipt Date: 20150806
  Transmission Date: 20151125
  Serious: No
  Sender: FDA-Public Use
  Company Number: US-GILEAD-2010-0031515

PATIENT
  Age: 80 Year
  Sex: Female
  Weight: 57.61 kg

DRUGS (19)
  1. LIPITOR [Concomitant]
     Active Substance: ATORVASTATIN CALCIUM
  2. TRIAMCINOLONE [Concomitant]
     Active Substance: TRIAMCINOLONE
  3. BONIVA [Concomitant]
     Active Substance: IBANDRONATE SODIUM
  4. NUMOISYN LOZENGE [Concomitant]
  5. LETAIRIS [Suspect]
     Active Substance: AMBRISENTAN
     Indication: PULMONARY ARTERIAL HYPERTENSION
     Route: 048
     Dates: start: 20080619
  6. IMURAN [Concomitant]
     Active Substance: AZATHIOPRINE
  7. NYSTATIN. [Concomitant]
     Active Substance: NYSTATIN
  8. VITAMIN D [Concomitant]
     Active Substance: CHOLECALCIFEROL
  9. ENALAPRIL [Concomitant]
     Active Substance: ENALAPRIL
  10. LASIX [Concomitant]
     Active Substance: FUROSEMIDE
  11. NORVASC [Concomitant]
     Active Substance: AMLODIPINE BESYLATE
  12. METFORMIN [Concomitant]
     Active Substance: METFORMIN HYDROCHLORIDE
  13. ASPIRIN. [Concomitant]
     Active Substance: ASPIRIN
  14. LEVOTHYROXINE. [Concomitant]
     Active Substance: LEVOTHYROXINE
  15. LEVAQUIN [Concomitant]
     Active Substance: LEVOFLOXACIN
  16. ECONAZOLE [Concomitant]
     Active Substance: ECONAZOLE
  17. CALCIUM 500+D [Concomitant]
     Active Substance: CALCIUM\VITAMIN D
  18. PREDNISOLONE. [Concomitant]
     Active Substance: PREDNISOLONE
  19. ATENOLOL. [Concomitant]
     Active Substance: ATENOLOL

REACTIONS (2)
  - Productive cough [Unknown]
  - Pain [Unknown]
